FAERS Safety Report 9496633 (Version 1)
Quarter: 2013Q3

REPORT INFORMATION
  Report Type: Spontaneous
  Country: IT (occurrence: IT)
  Receive Date: 20130904
  Receipt Date: 20130904
  Transmission Date: 20140515
  Serious: Yes (Other)
  Sender: FDA-Public Use
  Company Number: IT-ASTELLAS-2013EU007508

PATIENT
  Age: 17 Year
  Sex: Female

DRUGS (3)
  1. TACROLIMUS SYSTEMIC [Suspect]
     Indication: TRANSPLANT
     Dosage: UNK
     Route: 065
  2. ALEMTUZUMAB [Concomitant]
     Indication: IMMUNOSUPPRESSION
     Dosage: UNK
     Route: 065
  3. CORTICOSTEROID NOS [Concomitant]
     Indication: IMMUNOSUPPRESSION
     Dosage: 25 MG, UNKNOWN/D
     Route: 048

REACTIONS (4)
  - Off label use [Unknown]
  - Acute graft versus host disease [Recovered/Resolved]
  - Chronic graft versus host disease [Recovered/Resolved]
  - Leukopenia [Recovered/Resolved]
